FAERS Safety Report 18564380 (Version 1)
Quarter: 2020Q4

REPORT INFORMATION
  Report Type: Report from Study
  Country: US (occurrence: US)
  Receive Date: 20201201
  Receipt Date: 20201201
  Transmission Date: 20210114
  Serious: Yes (Death)
  Sender: FDA-Public Use
  Company Number: US-MYLANLABS-2020M1097690

PATIENT
  Age: 71 Year
  Sex: Male

DRUGS (1)
  1. HEPARIN [Suspect]
     Active Substance: HEPARIN SODIUM
     Indication: THROMBOSIS PROPHYLAXIS
     Dosage: GIVEN WITHIN 2 HOURS OF INITIATING SURGERY?
     Route: 058

REACTIONS (2)
  - Disseminated intravascular coagulation [Fatal]
  - Haemorrhage [Fatal]
